FAERS Safety Report 20665112 (Version 1)
Quarter: 2022Q2

REPORT INFORMATION
  Report Type: Spontaneous
  Country: US (occurrence: US)
  Receive Date: 20220401
  Receipt Date: 20220401
  Transmission Date: 20220721
  Serious: No
  Sender: FDA-Public Use
  Company Number: US-PFIZER INC-2021882796

PATIENT
  Age: 63 Year
  Sex: Female
  Weight: 46.259 kg

DRUGS (3)
  1. IBRANCE [Suspect]
     Active Substance: PALBOCICLIB
     Indication: Breast cancer
     Dosage: 125 MG, CYCLIC (1 DAILY FOR 21 DAYS)
     Route: 048
     Dates: start: 202106
  2. LETROZOLE [Concomitant]
     Active Substance: LETROZOLE
     Dosage: 100 % POWDER
  3. CHOLECALCIFEROL [Concomitant]
     Active Substance: CHOLECALCIFEROL
     Dosage: 0.01 MG (VITAMIN D-400 10 MCG TABLET)

REACTIONS (1)
  - Full blood count decreased [Unknown]
